FAERS Safety Report 12288982 (Version 3)
Quarter: 2017Q1

REPORT INFORMATION
  Report Type: Report from Study
  Country: CA (occurrence: CA)
  Receive Date: 20160421
  Receipt Date: 20170227
  Transmission Date: 20170428
  Serious: Yes (Other)
  Sender: FDA-Public Use
  Company Number: CA-UCBSA-2016013899

PATIENT
  Age: 61 Year
  Sex: Male
  Weight: 85 kg

DRUGS (6)
  1. PREDNISONE. [Concomitant]
     Active Substance: PREDNISONE
     Indication: COUGH
     Dosage: TAKEN FOR 5 DAYS
     Dates: start: 2016, end: 2016
  2. PREDNISONE. [Concomitant]
     Active Substance: PREDNISONE
     Indication: NASOPHARYNGITIS
     Dosage: TAKEN FOR 2 DAYS
     Dates: start: 2016, end: 2016
  3. PREDNISONE. [Concomitant]
     Active Substance: PREDNISONE
     Indication: RESPIRATORY TRACT CONGESTION
  4. CERTOLIZUMAB PEGOL RA [Suspect]
     Active Substance: CERTOLIZUMAB PEGOL
     Indication: RHEUMATOID ARTHRITIS
     Dosage: 400 MG, EV 2 WEEKS(QOW)
     Route: 058
     Dates: start: 20140813, end: 20140910
  5. CERTOLIZUMAB PEGOL RA [Suspect]
     Active Substance: CERTOLIZUMAB PEGOL
     Dosage: 200 MG, EV 2 WEEKS(QOW)
     Route: 058
     Dates: start: 20140924, end: 2016
  6. REFRESH [Concomitant]
     Active Substance: UNSPECIFIED INGREDIENT
     Indication: DRY EYE
     Dosage: UNK, AS NEEDED (PRN)

REACTIONS (4)
  - Dry eye [Not Recovered/Not Resolved]
  - Cough [Recovered/Resolved]
  - Nasopharyngitis [Recovered/Resolved]
  - Arthritis [Recovered/Resolved]

NARRATIVE: CASE EVENT DATE: 201604
